FAERS Safety Report 18735265 (Version 1)
Quarter: 2021Q1

REPORT INFORMATION
  Report Type: Spontaneous
  Country: DK (occurrence: DK)
  Receive Date: 20210113
  Receipt Date: 20210113
  Transmission Date: 20210419
  Serious: Yes (Other)
  Sender: FDA-Public Use
  Company Number: DK-CURIUM-2020000552

PATIENT
  Age: 27 Year
  Sex: Female

DRUGS (4)
  1. PROPYLTHIOURACIL. [Concomitant]
     Active Substance: PROPYLTHIOURACIL
     Indication: HYPERTHYROIDISM
     Dates: start: 20191031, end: 20191218
  2. SODIUM IODIDE I 131 [Suspect]
     Active Substance: SODIUM IODIDE I-131
     Indication: HYPERTHYROIDISM
     Dates: start: 20191111, end: 20191111
  3. COLCHICINE. [Concomitant]
     Active Substance: COLCHICINE
     Indication: FAMILIAL MEDITERRANEAN FEVER
     Dates: start: 20200117
  4. THIAMAZOLE [Concomitant]
     Active Substance: METHIMAZOLE
     Indication: HYPERTHYROIDISM
     Dosage: DOSAGE: VARIES BETWEEN 5 AND 15 MG/DAY
     Dates: start: 20190423

REACTIONS (16)
  - Lacrimation increased [Unknown]
  - Swelling [Unknown]
  - Vision blurred [Not Recovered/Not Resolved]
  - Hypothyroidism [Not Recovered/Not Resolved]
  - Eye pain [Unknown]
  - Swelling of eyelid [Not Recovered/Not Resolved]
  - Asthenopia [Unknown]
  - Fatigue [Unknown]
  - Memory impairment [Unknown]
  - Constipation [Unknown]
  - Hypotension [Unknown]
  - Visual field defect [Unknown]
  - Weight increased [Unknown]
  - Pain [Unknown]
  - Diplopia [Not Recovered/Not Resolved]
  - Endocrine ophthalmopathy [Not Recovered/Not Resolved]

NARRATIVE: CASE EVENT DATE: 2019
